FAERS Safety Report 19107172 (Version 1)
Quarter: 2021Q2

REPORT INFORMATION
  Report Type: Spontaneous
  Country: US (occurrence: US)
  Receive Date: 20210408
  Receipt Date: 20210408
  Transmission Date: 20210717
  Serious: Yes (Hospitalization)
  Sender: FDA-Public Use
  Company Number: None

PATIENT
  Age: 58 Year
  Sex: Male

DRUGS (2)
  1. PFIZER COVID VACCINE DOSE 1 [Concomitant]
     Dates: start: 20210323, end: 20210323
  2. CASIRIVIMAB/IMDEVIMAB [Suspect]
     Active Substance: CASIRIVIMAB\IMDEVIMAB
     Indication: COVID-19 TREATMENT
     Dates: start: 20210405, end: 20210405

REACTIONS (9)
  - Respiratory rate increased [None]
  - Chest pain [None]
  - Oxygen saturation decreased [None]
  - Heart rate increased [None]
  - Feeling hot [None]
  - Chills [None]
  - Body temperature increased [None]
  - Dyspnoea [None]
  - Somnolence [None]

NARRATIVE: CASE EVENT DATE: 20210405
